FAERS Safety Report 6701899-6 (Version None)
Quarter: 2010Q2

REPORT INFORMATION
  Report Type: 
  Country: None (occurrence: None)
  Receive Date: 20100429
  Receipt Date: 20100419
  Transmission Date: 20101027
  Serious: Yes (Other)
  Sender: FDA-Public Use
  Company Number: DE-PFIZER INC-2010021137

PATIENT
  Sex: Male
  Weight: 107 kg

DRUGS (52)
  1. CAVERJECT [Suspect]
     Indication: ERECTILE DYSFUNCTION
     Dosage: TWICE DAILY AS NEEDED
     Route: 017
  2. DILATREND [Concomitant]
     Dosage: UNK
  3. LONOLOX [Concomitant]
     Dosage: 10 UNK (UNITS NOT PROVIDED), 2X/DAY
  4. CATAPRESAN [Concomitant]
     Dosage: 150 MG, 1X/DAY
  5. EBRANTIL [Concomitant]
     Dosage: 90 UNK (UNITS NOT PROVIDED), 3X/DAY
  6. LORZAAR [Concomitant]
     Dosage: 50 UNK (UNITS NOT PROVIDED), 2X/DAY
  7. DIOVAN HCT [Concomitant]
     Dosage: UNK
  8. ZAROXOLYN [Concomitant]
     Dosage: UNK
  9. CYNT [Concomitant]
     Dosage: 0.2 (UNITS NOT PROVIDED)
  10. RANITIDINE [Concomitant]
     Dosage: 300 UNK (UNITS NOT PROVIDED), 1X/DAY
  11. TORSEMIDE [Concomitant]
     Dosage: UNK
  12. NORVASC [Concomitant]
     Dosage: 10 UNK (UNITS NOT PROVIDED), 2X/DAY
  13. KARVEZIDE [Concomitant]
     Dosage: UNK
  14. METOPROLOL SUCCINATE [Concomitant]
     Dosage: UNK
  15. TROMCARDIN FORTE [Concomitant]
     Dosage: UNK, 2-2-2 DAILY
  16. REKAWAN [Concomitant]
     Dosage: UNK, 5 TIMES 2 CAPSULES DAILY
     Route: 048
  17. MAGNETRANS FORTE [Concomitant]
     Dosage: UNK, 2-2-2 DAILY
  18. LIMPTAR [Concomitant]
     Dosage: UNK
  19. BAYOTENSIN [Concomitant]
     Dosage: UNK
  20. REMERGIL [Concomitant]
     Dosage: 30 MG, 1X/DAY
  21. SORTIS [Concomitant]
     Dosage: 10 MG, 1X/DAY
  22. GLUCOPHAGE [Concomitant]
     Dosage: 1000 UNK (UNITS NOT PROVIDED), 2X/DAY
  23. NOVONORM [Concomitant]
     Dosage: 2 MG ONCE WITH EVERY FOOD OR DRINK
  24. ROHYPNOL [Concomitant]
     Dosage: UNK
  25. CONCOR [Concomitant]
     Dosage: 5 UNK (UNITS NOT PROVIDED), 2X/DAY
  26. DECORTIN [Concomitant]
     Dosage: UNK
  27. ADALAT [Concomitant]
     Dosage: UNK
     Route: 048
  28. NITRO-SPRAY [Concomitant]
     Dosage: UNK
  29. EBRANTIL FOR INJECTION [Concomitant]
     Dosage: UNK, ACCORDING TO AVAILABILITY
     Route: 042
  30. TRAMAL [Concomitant]
     Indication: HEADACHE
     Dosage: UNK
  31. DURAGESIC-100 [Concomitant]
     Dosage: UNK
  32. ACTIQ [Concomitant]
     Indication: COUGH
     Dosage: UNK
     Route: 048
  33. ALNA [Concomitant]
     Dosage: UNK
  34. PROSTAGUTT [Concomitant]
     Dosage: UNK
  35. CIALIS [Concomitant]
     Dosage: UNK
  36. CEFIXIME [Concomitant]
     Dosage: UNK
  37. SINUPRET [Concomitant]
     Dosage: UNK
  38. PROSPAN [Concomitant]
     Dosage: UNK
  39. GELOMYRTOL FORTE [Concomitant]
     Dosage: UNK
  40. TIMONIL [Concomitant]
     Dosage: UNK
  41. QUILONUM [Concomitant]
     Dosage: UNK
  42. LYRICA [Concomitant]
     Dosage: 150 MG, 4X/DAY
     Route: 048
  43. BEROTEC [Concomitant]
     Dosage: UNK
  44. CIPROFLOXACIN [Concomitant]
  45. CODIPRONT [Concomitant]
     Dosage: UNK
  46. PANTOZOL [Concomitant]
  47. OPIUM TINCTURE [Concomitant]
     Indication: DIARRHOEA
     Dosage: UNK
  48. LOPERAMIDE [Concomitant]
     Indication: DIARRHOEA
     Dosage: UNK
  49. ACTRAPID [Concomitant]
     Indication: DIABETES MELLITUS
     Dosage: UNK
  50. PROTAPHAN [Concomitant]
     Indication: DIABETES MELLITUS
     Dosage: UNK
  51. SITAGLIPTIN [Concomitant]
     Indication: DIABETES MELLITUS
     Dosage: UNK
  52. ANDROGEL [Concomitant]
     Indication: ERECTILE DYSFUNCTION
     Dosage: UNK

REACTIONS (3)
  - CATHETERISATION CARDIAC [None]
  - ERECTILE DYSFUNCTION [None]
  - HAEMORRHAGE [None]
